FAERS Safety Report 5136303-5 (Version None)
Quarter: 2006Q4

REPORT INFORMATION
  Report Type: 
  Country: None (occurrence: None)
  Receive Date: 20061027
  Receipt Date: 20060918
  Transmission Date: 20070319
  Serious: Yes (Hospitalization)
  Sender: FDA-Public Use
  Company Number: IT-GLAXOSMITHKLINE-B0439366A

PATIENT
  Age: 51 Year
  Sex: Female

DRUGS (1)
  1. AUGMENTIN '125' [Suspect]
     Indication: TOOTH ABSCESS
     Dosage: 2TAB PER DAY
     Route: 048
     Dates: start: 20060821, end: 20060822

REACTIONS (1)
  - EYELID OEDEMA [None]
